FAERS Safety Report 16591109 (Version 1)
Quarter: 2019Q3

REPORT INFORMATION
  Report Type: Spontaneous
  Country: US (occurrence: US)
  Receive Date: 20190605
  Receipt Date: 20190605
  Transmission Date: 20191004
  Serious: No
  Sender: FDA-Public Use
  Company Number: None

PATIENT
  Age: 78 Year
  Sex: Male

DRUGS (1)
  1. CAPECITABINE TAB 500MG [Suspect]
     Active Substance: CAPECITABINE
     Dates: start: 20190502

REACTIONS (3)
  - Nasopharyngitis [None]
  - Oropharyngeal pain [None]
  - Productive cough [None]

NARRATIVE: CASE EVENT DATE: 20190605
